FAERS Safety Report 16251311 (Version 1)
Quarter: 2019Q2

REPORT INFORMATION
  Report Type: Spontaneous
  Country: US (occurrence: US)
  Receive Date: 20190429
  Receipt Date: 20190429
  Transmission Date: 20190711
  Serious: Yes (Hospitalization)
  Sender: FDA-Public Use
  Company Number: US-NEXGEN PHARMA, INC.-2066393

PATIENT
  Age: 69 Year
  Sex: Female

DRUGS (1)
  1. CHENODAL [Suspect]
     Active Substance: CHENODIOL
     Indication: LIPID METABOLISM DISORDER
     Route: 048
     Dates: start: 20130727

REACTIONS (5)
  - Bundle branch block right [Unknown]
  - Hiatus hernia [Unknown]
  - Large intestine perforation [Unknown]
  - Cardiac stress test [Unknown]
  - Intestinal obstruction [Unknown]
